FAERS Safety Report 8272389-7 (Version None)
Quarter: 2012Q2

REPORT INFORMATION
  Report Type: 
  Country: None (occurrence: None)
  Receive Date: 20120410
  Receipt Date: 20120326
  Transmission Date: 20120825
  Serious: Yes (Other)
  Sender: FDA-Public Use
  Company Number: CHPA2012US005911

PATIENT
  Age: 33 Year
  Sex: Female

DRUGS (1)
  1. EXCEDRIN (MIGRAINE) [Suspect]
     Indication: TOOTHACHE
     Dosage: 2 DF, UNK
     Route: 048
     Dates: start: 20120325, end: 20120326

REACTIONS (4)
  - HYPOAESTHESIA [None]
  - OFF LABEL USE [None]
  - SWELLING [None]
  - INFECTION [None]
